FAERS Safety Report 11423867 (Version 1)
Quarter: 2015Q3

REPORT INFORMATION
  Report Type: Spontaneous
  Country: US (occurrence: US)
  Receive Date: 20150827
  Receipt Date: 20150827
  Transmission Date: 20151125
  Serious: No
  Sender: FDA-Public Use
  Company Number: US-JNJFOC-20141219414

PATIENT
  Age: 12 Year
  Sex: Female
  Weight: 51.26 kg

DRUGS (1)
  1. MOTRIN IB [Suspect]
     Active Substance: IBUPROFEN
     Indication: PYREXIA
     Dosage: 3 TEASPOONS ONCE
     Route: 048

REACTIONS (2)
  - Drug hypersensitivity [Unknown]
  - Swelling face [Recovered/Resolved]
